FAERS Safety Report 7767896-7 (Version None)
Quarter: 2011Q3

REPORT INFORMATION
  Report Type: 
  Country: None (occurrence: None)
  Receive Date: 20110922
  Receipt Date: 20110419
  Transmission Date: 20111222
  Serious: No
  Sender: FDA-Public Use
  Company Number: US-ASTRAZENECA-2011SE23349

PATIENT
  Age: 39 Year
  Sex: Female

DRUGS (1)
  1. SEROQUEL XR [Suspect]
     Indication: POST-TRAUMATIC STRESS DISORDER
     Dosage: POST TRAUMATIC STRESS DISORDER
     Route: 048

REACTIONS (2)
  - OFF LABEL USE [None]
  - BACK DISORDER [None]
